FAERS Safety Report 13453753 (Version 1)
Quarter: 2017Q2

REPORT INFORMATION
  Report Type: Spontaneous
  Country: None (occurrence: US)
  Receive Date: 20170418
  Receipt Date: 20170418
  Transmission Date: 20170830
  Serious: No
  Sender: FDA-Public Use
  Company Number: US-ALLERGAN-1653512US

PATIENT
  Sex: Female
  Weight: 3.5 kg

DRUGS (1)
  1. LATISSE [Suspect]
     Active Substance: BIMATOPROST
     Indication: PRODUCT USED FOR UNKNOWN INDICATION
     Dosage: UNK, QD
     Route: 061
     Dates: start: 20160425, end: 20160429

REACTIONS (4)
  - Burning sensation [Unknown]
  - Erythema [Unknown]
  - Pruritus [Unknown]
  - Skin irritation [Unknown]
